FAERS Safety Report 4528918-X (Version None)
Quarter: 2004Q4

REPORT INFORMATION
  Report Type: 
  Country: None (occurrence: None)
  Receive Date: 20041214
  Receipt Date: 20041122
  Transmission Date: 20050328
  Serious: No
  Sender: FDA-Public Use
  Company Number: USA041184421

PATIENT
  Age: 52 Year
  Sex: Female

DRUGS (7)
  1. CYMBALTA [Suspect]
     Indication: DEPRESSION
     Dosage: 30 MG DAY
     Dates: start: 20041001, end: 20041101
  2. VASOTEC [Concomitant]
  3. AMILORIDE [Concomitant]
  4. POTASSIUM [Concomitant]
  5. VITAMIN E [Concomitant]
  6. AMBIEN [Concomitant]
  7. CLONAZEPAM [Concomitant]

REACTIONS (2)
  - ABDOMINAL PAIN LOWER [None]
  - HEPATIC FUNCTION ABNORMAL [None]
